FAERS Safety Report 6311498-6 (Version None)
Quarter: 2009Q3

REPORT INFORMATION
  Report Type: 
  Country: None (occurrence: None)
  Receive Date: 20090817
  Receipt Date: 20090810
  Transmission Date: 20100115
  Serious: Yes (Other)
  Sender: FDA-Public Use
  Company Number: JP-BAYER-200912877BYL

PATIENT
  Age: 74 Year
  Sex: Male
  Weight: 69 kg

DRUGS (6)
  1. NEXAVAR [Suspect]
     Indication: HEPATIC CANCER STAGE IV
     Dosage: UNIT DOSE: 200 MG
     Route: 048
     Dates: start: 20090707, end: 20090714
  2. NEXAVAR [Suspect]
     Dosage: UNIT DOSE: 200 MG
     Route: 048
     Dates: start: 20090714
  3. UREPEARL [Concomitant]
     Indication: PROPHYLAXIS
     Route: 061
     Dates: start: 20090707
  4. LOPEMIN [Concomitant]
     Indication: PROPHYLAXIS
     Dosage: AT DIARRHOEA
     Route: 048
     Dates: start: 20090707
  5. ZADITEN [Concomitant]
     Indication: PROPHYLAXIS
     Dosage: AT FEEL ICHY
     Route: 048
     Dates: start: 20090707
  6. PRIMPERAN [Concomitant]
     Indication: PROPHYLAXIS
     Dosage: AT NAUSEA
     Route: 048
     Dates: start: 20090707

REACTIONS (2)
  - DYSPHONIA [None]
  - LIVER DISORDER [None]
